FAERS Safety Report 7584101-5 (Version None)
Quarter: 2011Q2

REPORT INFORMATION
  Report Type: 
  Country: None (occurrence: None)
  Receive Date: 20110630
  Receipt Date: 20110628
  Transmission Date: 20111010
  Serious: Yes (Life-Threatening, Hospitalization)
  Sender: FDA-Public Use
  Company Number: US-JNJFOC-20110606145

PATIENT
  Age: 90 Year
  Sex: Male

DRUGS (1)
  1. LEVAQUIN [Suspect]
     Indication: INFECTION
     Route: 048
     Dates: start: 20110101, end: 20110101

REACTIONS (5)
  - SPEECH DISORDER [None]
  - DYSPHAGIA [None]
  - SELF-MEDICATION [None]
  - ASTHENIA [None]
  - MUSCLE CONTRACTIONS INVOLUNTARY [None]
